FAERS Safety Report 6839565-9 (Version None)
Quarter: 2010Q3

REPORT INFORMATION
  Report Type: 
  Country: None (occurrence: None)
  Receive Date: 20100714
  Receipt Date: 20100420
  Transmission Date: 20110219
  Serious: No
  Sender: FDA-Public Use
  Company Number: A0846418A

PATIENT
  Age: 60 Year
  Sex: Female

DRUGS (5)
  1. FLOVENT [Suspect]
     Indication: ASTHMA
     Route: 055
     Dates: start: 20091201
  2. SYNTHROID [Concomitant]
  3. PROZAC [Concomitant]
  4. DIURETIC [Concomitant]
  5. FLU VACCINE [Concomitant]

REACTIONS (9)
  - COUGH [None]
  - DYSPHONIA [None]
  - HEADACHE [None]
  - INFLUENZA [None]
  - NASOPHARYNGITIS [None]
  - OROPHARYNGEAL PAIN [None]
  - PYREXIA [None]
  - RHINORRHOEA [None]
  - UPPER RESPIRATORY TRACT INFECTION [None]
